FAERS Safety Report 25621877 (Version 2)
Quarter: 2025Q3

REPORT INFORMATION
  Report Type: Report from Study
  Country: US (occurrence: US)
  Receive Date: 20250730
  Receipt Date: 20250812
  Transmission Date: 20251021
  Serious: Yes (Hospitalization)
  Sender: ABBVIE
  Company Number: US-ABBVIE-6391274

PATIENT
  Sex: Male

DRUGS (1)
  1. HUMIRA [Suspect]
     Active Substance: ADALIMUMAB
     Indication: Product used for unknown indication
     Route: 058
     Dates: start: 20230615

REACTIONS (5)
  - Pancreatic failure [Not Recovered/Not Resolved]
  - Chest pain [Unknown]
  - Underweight [Unknown]
  - Musculoskeletal chest pain [Unknown]
  - Asthenia [Unknown]
